FAERS Safety Report 20837796 (Version 1)
Quarter: 2022Q2

REPORT INFORMATION
  Report Type: Spontaneous
  Country: IN (occurrence: IN)
  Receive Date: 20220517
  Receipt Date: 20220517
  Transmission Date: 20220721
  Serious: Yes (Hospitalization)
  Sender: FDA-Public Use
  Company Number: IN-STRIDES ARCOLAB LIMITED-2022SP005607

PATIENT
  Age: 63 Year
  Sex: Male

DRUGS (1)
  1. PREDNISOLONE [Suspect]
     Active Substance: PREDNISOLONE
     Indication: COVID-19 pneumonia
     Dosage: 60 MILLIGRAM SCHEDULED TO RECEIVE FOR 7 DAYS
     Route: 065

REACTIONS (5)
  - Pneumothorax [Unknown]
  - Pulmonary mucormycosis [Recovered/Resolved]
  - Pneumonia klebsiella [Unknown]
  - Aspergillus infection [Unknown]
  - Off label use [Unknown]
